FAERS Safety Report 4821640-1 (Version None)
Quarter: 2005Q4

REPORT INFORMATION
  Report Type: 
  Country: None (occurrence: None)
  Receive Date: 20051107
  Receipt Date: 20050829
  Transmission Date: 20060501
  Serious: Yes (Disabling)
  Sender: FDA-Public Use
  Company Number: US-MERCK-0508USA04504

PATIENT
  Age: 55 Year
  Sex: Female
  Weight: 64 kg

DRUGS (9)
  1. ZOCOR [Suspect]
     Indication: BLOOD CHOLESTEROL INCREASED
     Route: 048
     Dates: start: 20040301, end: 20050701
  2. ZOCOR [Suspect]
     Route: 048
     Dates: start: 20040101, end: 20040301
  3. ZOCOR [Suspect]
     Indication: HYPERLIPIDAEMIA
     Route: 048
     Dates: start: 20040301, end: 20050701
  4. ZOCOR [Suspect]
     Route: 048
     Dates: start: 20040101, end: 20040301
  5. AVANDIA [Concomitant]
     Route: 065
  6. AMARYL [Concomitant]
     Route: 065
  7. COZAAR [Concomitant]
     Route: 065
  8. TRAMADOL HYDROCHLORIDE [Concomitant]
     Indication: OSTEOARTHRITIS
     Route: 065
  9. IBUPROFEN [Concomitant]
     Route: 048

REACTIONS (3)
  - ARTHRALGIA [None]
  - OSTEOARTHRITIS [None]
  - PAIN IN EXTREMITY [None]
